FAERS Safety Report 5576127-8 (Version None)
Quarter: 2007Q4

REPORT INFORMATION
  Report Type: 
  Country: None (occurrence: None)
  Receive Date: 20071228
  Receipt Date: 20071219
  Transmission Date: 20080405
  Serious: Yes (Hospitalization, Other)
  Sender: FDA-Public Use
  Company Number: PHBS2007DE20464

PATIENT
  Age: 56 Year
  Sex: Female

DRUGS (8)
  1. CYCLOSPORINE [Suspect]
     Indication: STEM CELL TRANSPLANT
     Dosage: UNK, UNK
     Route: 065
     Dates: start: 20060701
  2. METHOTREXATE [Concomitant]
     Indication: CENTRAL NERVOUS SYSTEM LEUKAEMIA
     Route: 037
  3. CYTARABINE [Concomitant]
     Indication: CENTRAL NERVOUS SYSTEM LEUKAEMIA
     Route: 037
  4. MYCOPHENOLATE MOFETIL [Concomitant]
     Indication: STEM CELL TRANSPLANT
  5. POSACONAZOLE [Concomitant]
  6. ACYCLOVIR [Concomitant]
  7. SULFAMETHOXAZOLE AND TRIMETHOPRIM [Concomitant]
     Dates: end: 20061201
  8. PENTAMIDINE ISETHIONATE [Concomitant]
     Dates: start: 20061201

REACTIONS (14)
  - CEREBELLAR SYNDROME [None]
  - CEREBRAL TOXOPLASMOSIS [None]
  - CLONIC CONVULSION [None]
  - DIPLOPIA [None]
  - ELECTROENCEPHALOGRAM ABNORMAL [None]
  - EXTRAOCULAR MUSCLE PARESIS [None]
  - EYELID PTOSIS [None]
  - GAIT DISTURBANCE [None]
  - HEMIPLEGIA [None]
  - NUCLEAR MAGNETIC RESONANCE IMAGING BRAIN ABNORMAL [None]
  - PANCYTOPENIA [None]
  - PERSONALITY CHANGE [None]
  - PSYCHOMOTOR RETARDATION [None]
  - TOXOPLASMA SEROLOGY POSITIVE [None]
